FAERS Safety Report 5160310-X (Version None)
Quarter: 2006Q4

REPORT INFORMATION
  Report Type: 
  Country: None (occurrence: None)
  Receive Date: 20061121
  Receipt Date: 20061106
  Transmission Date: 20070319
  Serious: Yes (Hospitalization)
  Sender: FDA-Public Use
  Company Number: 2006136240

PATIENT
  Age: 17 Year
  Sex: Male
  Weight: 205.3 kg

DRUGS (2)
  1. ZIPRASIDONE HCL [Suspect]
     Indication: SCHIZOPHRENIA
     Dosage: 140 MG (70 MG, 2 IN 1 D), ORAL
     Route: 048
     Dates: start: 20050127, end: 20050307
  2. PROZAC [Concomitant]

REACTIONS (6)
  - CONDITION AGGRAVATED [None]
  - FAMILY STRESS [None]
  - PARANOIA [None]
  - PSYCHIATRIC SYMPTOM [None]
  - SUICIDAL IDEATION [None]
  - TREATMENT NONCOMPLIANCE [None]
